FAERS Safety Report 5662582-1 (Version None)
Quarter: 2008Q1

REPORT INFORMATION
  Report Type: 
  Country: None (occurrence: None)
  Receive Date: 20080219
  Receipt Date: 20071219
  Transmission Date: 20080703
  Serious: Yes (Other)
  Sender: FDA-Public Use
  Company Number: PHEH2007US15980

PATIENT
  Age: 22 Year
  Sex: Male

DRUGS (3)
  1. TOBRAMYCIN [Suspect]
     Indication: CYSTIC FIBROSIS
     Dosage: BID, INHALATION
     Route: 055
     Dates: start: 20000101, end: 20060101
  2. ALBUTEROL [Concomitant]
  3. PULMOZYME [Concomitant]

REACTIONS (2)
  - DYSPNOEA [None]
  - HAEMOPTYSIS [None]
